FAERS Safety Report 5849994-8 (Version None)
Quarter: 2008Q3

REPORT INFORMATION
  Report Type: 
  Country: None (occurrence: None)
  Receive Date: 20080815
  Receipt Date: 20080806
  Transmission Date: 20090109
  Serious: Yes (Death, Hospitalization)
  Sender: FDA-Public Use
  Company Number: CLOF-10668

PATIENT
  Age: 73 Year
  Sex: Male
  Weight: 69.5 kg

DRUGS (13)
  1. CLOFARABINE           (CLOFARABINE) [Suspect]
     Indication: ACUTE MYELOID LEUKAEMIA
     Dosage: 30 MG/M2, QDX5, INTRAVENOUS
     Route: 042
     Dates: start: 20070907, end: 20070911
  2. AMBIEN [Concomitant]
  3. PHYTONADIONE [Concomitant]
  4. VERAPAMIL [Concomitant]
  5. VALSARTAN AND HYDROCHLOROTHIAZIDE [Concomitant]
  6. BACTRIM [Concomitant]
  7. COMPAZINE (PROCHLORPERAZINE MALEATE) [Concomitant]
  8. PAROXETINE [Concomitant]
  9. OXAZEPAM [Concomitant]
  10. HEPARIN [Concomitant]
  11. FLUCONAZOLE [Concomitant]
  12. SODIUM BICARBONATE IN PLASTIC CONTAINER [Concomitant]
  13. ALLOPURINOL [Concomitant]

REACTIONS (19)
  - ACUTE RESPIRATORY DISTRESS SYNDROME [None]
  - ATRIAL FIBRILLATION [None]
  - CEREBRAL HAEMORRHAGE [None]
  - COAGULOPATHY [None]
  - CONDITION AGGRAVATED [None]
  - DISSEMINATED INTRAVASCULAR COAGULATION [None]
  - GASTROINTESTINAL HAEMORRHAGE [None]
  - HYPOTENSION [None]
  - INTRACRANIAL HAEMATOMA [None]
  - LEFT VENTRICULAR DYSFUNCTION [None]
  - OPERATIVE HAEMORRHAGE [None]
  - PANCYTOPENIA [None]
  - PNEUMONITIS [None]
  - PULMONARY HYPERTENSION [None]
  - PULMONARY OEDEMA [None]
  - PYREXIA [None]
  - RESPIRATORY FAILURE [None]
  - SEPSIS [None]
  - TRICUSPID VALVE INCOMPETENCE [None]
